FAERS Safety Report 5492501-2 (Version None)
Quarter: 2007Q4

REPORT INFORMATION
  Report Type: 
  Country: None (occurrence: None)
  Receive Date: 20071022
  Receipt Date: 20071012
  Transmission Date: 20080405
  Serious: Yes (Hospitalization)
  Sender: FDA-Public Use
  Company Number: AT-BOEHRINGER INGELHEIM PHARMACEUTICALS, INC.-2007-BE-00020BE

PATIENT
  Sex: Male

DRUGS (12)
  1. SIFROL -  0,35 MG - TABLETTEN [Suspect]
     Indication: PARKINSON'S DISEASE
     Dosage: 1,575 AT LEAST UP TO JAN-2004
     Route: 048
     Dates: start: 20020101
  2. MADOPAR [Suspect]
     Indication: PARKINSON'S DISEASE
     Dosage: STRENGTH: 50MG LEVODOPA/ 12,5MG BENSERAZID, TOTAL DAILY DOSE 150MG/ 37,5 MG
     Route: 048
  3. SUPRESSIN [Concomitant]
  4. METOPROLOL TARTRATE [Concomitant]
     Route: 048
  5. ALNA R [Concomitant]
     Route: 048
  6. ACECOMBSEMI [Concomitant]
  7. CIPRALEX [Concomitant]
  8. FLURPAX [Concomitant]
  9. LASIX [Concomitant]
  10. KCL RET. [Concomitant]
  11. PERIDOL [Concomitant]
     Route: 048
  12. ASPIRIN [Concomitant]

REACTIONS (8)
  - ABNORMAL BEHAVIOUR [None]
  - AGGRESSION [None]
  - AMNESIA [None]
  - HALLUCINATION [None]
  - MENTAL DISORDER [None]
  - OEDEMA PERIPHERAL [None]
  - PATHOLOGICAL GAMBLING [None]
  - SLEEP DISORDER [None]
